FAERS Safety Report 4581200-7 (Version None)
Quarter: 2005Q1

REPORT INFORMATION
  Report Type: 
  Country: None (occurrence: None)
  Receive Date: 20050214
  Receipt Date: 20040831
  Transmission Date: 20050727
  Serious: No
  Sender: FDA-Public Use
  Company Number: US-GLAXOSMITHKLINE-A0524056A

PATIENT
  Age: 39 Year
  Sex: Female
  Weight: 54.5 kg

DRUGS (3)
  1. LAMICTAL [Suspect]
     Indication: EPILEPSY
     Dosage: 150MG TWICE PER DAY
     Route: 048
     Dates: start: 20040701
  2. TEGRETOL [Concomitant]
  3. CARBATROL [Concomitant]
     Indication: EPILEPSY
     Dosage: 200MG VARIABLE DOSE
     Route: 048
     Dates: start: 20010101

REACTIONS (6)
  - COORDINATION ABNORMAL [None]
  - DIPLOPIA [None]
  - DIZZINESS [None]
  - FATIGUE [None]
  - PRURITUS [None]
  - RASH [None]
